FAERS Safety Report 6553708-6 (Version None)
Quarter: 2010Q1

REPORT INFORMATION
  Report Type: 
  Country: None (occurrence: None)
  Receive Date: 20100125
  Receipt Date: 20100125
  Transmission Date: 20100710
  Serious: Yes (Other)
  Sender: FDA-Public Use
  Company Number: None

PATIENT
  Age: 49 Year
  Sex: Female
  Weight: 62.1428 kg

DRUGS (2)
  1. CYMBALTA [Suspect]
     Indication: ANXIETY
     Dosage: 1 CAPSULE DAILY ORAL
     Route: 048
     Dates: start: 20090101, end: 20091001
  2. CYMBALTA [Suspect]
     Indication: DEPRESSION
     Dosage: 1 CAPSULE DAILY ORAL
     Route: 048
     Dates: start: 20090101, end: 20091001

REACTIONS (13)
  - AGGRESSION [None]
  - ANGER [None]
  - ANXIETY [None]
  - BLOOD PRESSURE INCREASED [None]
  - DYSKINESIA [None]
  - HEART RATE INCREASED [None]
  - HEART RATE IRREGULAR [None]
  - HOSTILITY [None]
  - IMPATIENCE [None]
  - MICTURITION URGENCY [None]
  - PALPITATIONS [None]
  - TREMOR [None]
  - URINARY INCONTINENCE [None]
